FAERS Safety Report 11094849 (Version 1)
Quarter: 2015Q2

REPORT INFORMATION
  Report Type: Spontaneous
  Country: US (occurrence: US)
  Receive Date: 20150506
  Receipt Date: 20150506
  Transmission Date: 20150821
  Serious: Yes (Other)
  Sender: FDA-Public Use
  Company Number: US-TARO-2015TAR00371

PATIENT
  Age: 1 Year
  Sex: Female
  Weight: 9.98 kg

DRUGS (2)
  1. CHILDRENS CETIRIZINE HYDROCHLORIDE SUGAR FREE GRAPE [Suspect]
     Active Substance: CETIRIZINE HYDROCHLORIDE
     Indication: HYPERSENSITIVITY
     Dosage: 0.5 TSP, ONCE
     Route: 048
     Dates: start: 20150423, end: 20150423
  2. CHILDRENS CETIRIZINE HYDROCHLORIDE SUGAR FREE GRAPE [Suspect]
     Active Substance: CETIRIZINE HYDROCHLORIDE
     Indication: SECRETION DISCHARGE

REACTIONS (9)
  - Conjunctivitis [Not Recovered/Not Resolved]
  - Febrile convulsion [Recovered/Resolved]
  - Loss of consciousness [Recovered/Resolved]
  - Blood glucose decreased [Unknown]
  - Cough [Unknown]
  - Decreased appetite [Unknown]
  - Drug ineffective [Not Recovered/Not Resolved]
  - Pyrexia [Recovering/Resolving]
  - Otitis media [Recovered/Resolved]

NARRATIVE: CASE EVENT DATE: 20150423
